FAERS Safety Report 4676970-3 (Version None)
Quarter: 2005Q3

REPORT INFORMATION
  Report Type: 
  Country: None (occurrence: None)
  Receive Date: 20050526
  Receipt Date: 20050517
  Transmission Date: 20060218
  Serious: Yes (Other)
  Sender: FDA-Public Use
  Company Number: 2005-01715

PATIENT
  Sex: Male

DRUGS (5)
  1. CONDYLOX [Suspect]
     Indication: TONGUE BLACK HAIRY
     Dosage: ^SMALL AMOUNT/DAB ON AREA^, BUCCAL
     Route: 002
     Dates: start: 20050401, end: 20050401
  2. VALIUM [Suspect]
     Dosage: ORAL
     Route: 048
  3. FLEXERIL [Suspect]
     Dosage: ORAL
     Route: 048
  4. FENTANYL CITRATE [Suspect]
     Dosage: TRANSDERMAL
     Route: 062
  5. ACE INHIBITOR [Concomitant]

REACTIONS (10)
  - COORDINATION ABNORMAL [None]
  - DRUG LEVEL INCREASED [None]
  - DRUG TOXICITY [None]
  - DYSARTHRIA [None]
  - FEELING DRUNK [None]
  - INTENTIONAL MISUSE [None]
  - MENTAL STATUS CHANGES [None]
  - OFF LABEL USE [None]
  - RENAL CYST [None]
  - RENAL FAILURE [None]
